FAERS Safety Report 16248329 (Version 3)
Quarter: 2019Q2

REPORT INFORMATION
  Report Type: Spontaneous
  Country: JP (occurrence: JP)
  Receive Date: 20190429
  Receipt Date: 20190620
  Transmission Date: 20190711
  Serious: Yes (Other)
  Sender: FDA-Public Use
  Company Number: JP-AMGEN-JPNSP2019066631

PATIENT
  Age: 9 Decade
  Sex: Female
  Weight: 52 kg

DRUGS (14)
  1. CALCIUM L-ASPARTATE [Concomitant]
     Dosage: 200 MG, QD
     Route: 048
  2. AMBROXOL [Concomitant]
     Active Substance: AMBROXOL
     Dosage: 45 MILLIGRAM, QD
     Route: 048
  3. ALFACALCIDOL [Concomitant]
     Active Substance: ALFACALCIDOL
     Dosage: 0.25 UG, QD
     Route: 048
  4. PL [Concomitant]
     Active Substance: ACETAMINOPHEN\CAFFEINE\PROMETHAZINE\SALICYLAMIDE
     Dosage: UNK
     Route: 048
  5. CALCIUM L-ASPARTATE [Concomitant]
     Indication: OSTEOPOROSIS
     Dosage: 200 MILLIGRAM, QD
     Route: 048
  6. TAKECAB [Concomitant]
     Active Substance: VONOPRAZAN FUMURATE
     Indication: POLYMYALGIA RHEUMATICA
     Dosage: 10 MILLIGRAM, QD
     Route: 048
     Dates: start: 20161209
  7. REBAMIPIDE [Concomitant]
     Active Substance: REBAMIPIDE
     Indication: OSTEOPOROSIS
     Dosage: 100 MILLIGRAM, TID
     Route: 048
  8. PRALIA [Suspect]
     Active Substance: DENOSUMAB
     Indication: OSTEOPOROSIS
     Dosage: 60 MILLIGRAM, Q6MO
     Route: 058
     Dates: start: 20180418, end: 20181015
  9. LOXOPROFEN [Concomitant]
     Active Substance: LOXOPROFEN
     Indication: OSTEOPOROSIS
     Dosage: 60 MILLIGRAM, TID
     Route: 048
  10. ALFACALCIDOL [Concomitant]
     Active Substance: ALFACALCIDOL
     Indication: OSTEOPOROSIS
     Dosage: 0.25 MICROGRAM, QD
     Route: 048
  11. ATORVASTATIN [Concomitant]
     Active Substance: ATORVASTATIN
     Indication: HYPERCHOLESTEROLAEMIA
     Dosage: 5 MILLIGRAM, QD
     Route: 048
     Dates: start: 20170626
  12. DIPYRIDAMOLE. [Concomitant]
     Active Substance: DIPYRIDAMOLE
     Indication: ANGINA PECTORIS
     Dosage: 25 MILLIGRAM, TID
     Route: 048
  13. PREDONINE [Concomitant]
     Active Substance: PREDNISOLONE
     Indication: POLYMYALGIA RHEUMATICA
     Dosage: 10 MILLIGRAM, QD
     Route: 048
  14. VALSARTAN. [Concomitant]
     Active Substance: VALSARTAN
     Indication: HYPERTENSION
     Dosage: 80 MILLIGRAM, QD
     Route: 048

REACTIONS (1)
  - Osteomyelitis [Recovered/Resolved]

NARRATIVE: CASE EVENT DATE: 20190408
